FAERS Safety Report 22042969 (Version 1)
Quarter: 2023Q1

REPORT INFORMATION
  Report Type: Spontaneous
  Country: US (occurrence: US)
  Receive Date: 20230228
  Receipt Date: 20230228
  Transmission Date: 20230418
  Serious: Yes (Other)
  Sender: FDA-Public Use
  Company Number: US-RECORDATI RARE DISEASE INC.-2022005483

PATIENT
  Age: 55 Year
  Sex: Female

DRUGS (3)
  1. PANHEMATIN [Suspect]
     Active Substance: HEMIN
     Indication: Porphyria acute
     Dosage: 350 MILLIGRAM
     Route: 065
     Dates: start: 2014
  2. PANHEMATIN [Suspect]
     Active Substance: HEMIN
     Dosage: 230 MILLIGRAM
     Route: 065
     Dates: start: 20221113
  3. PANHEMATIN [Suspect]
     Active Substance: HEMIN
     Dosage: 336 MILLIGRAM
     Route: 065
     Dates: start: 20230130

REACTIONS (7)
  - Atypical pneumonia [Not Recovered/Not Resolved]
  - Condition aggravated [Not Recovered/Not Resolved]
  - Limb discomfort [Unknown]
  - Decreased appetite [Unknown]
  - Headache [Unknown]
  - Off label use [Unknown]
  - Underdose [Unknown]

NARRATIVE: CASE EVENT DATE: 20221028
